FAERS Safety Report 4279680-X (Version None)
Quarter: 2004Q1

REPORT INFORMATION
  Report Type: 
  Country: None (occurrence: None)
  Receive Date: 20040122
  Receipt Date: 20040114
  Transmission Date: 20041129
  Serious: Yes (Death)
  Sender: FDA-Public Use
  Company Number: 2004194398JP

PATIENT
  Age: 72 Year
  Sex: Female

DRUGS (1)
  1. IDAMYCIN [Suspect]

REACTIONS (2)
  - LEUKOENCEPHALOPATHY [None]
  - SLOW VIRUS INFECTION [None]
